FAERS Safety Report 7122789-3 (Version None)
Quarter: 2010Q4

REPORT INFORMATION
  Report Type: 
  Country: None (occurrence: None)
  Receive Date: 20101124
  Receipt Date: 20101116
  Transmission Date: 20110411
  Serious: Yes (Other)
  Sender: FDA-Public Use
  Company Number: ZA-PFIZER INC-2010151611

PATIENT
  Sex: Male

DRUGS (1)
  1. XALATAN [Suspect]
     Route: 047

REACTIONS (4)
  - MACULAR DEGENERATION [None]
  - VISUAL ACUITY REDUCED [None]
  - VITREOUS DETACHMENT [None]
  - VITREOUS FLOATERS [None]
